FAERS Safety Report 5257078-5 (Version None)
Quarter: 2007Q1

REPORT INFORMATION
  Report Type: 
  Country: None (occurrence: None)
  Receive Date: 20070302
  Receipt Date: 20070214
  Transmission Date: 20070707
  Serious: Yes (Other)
  Sender: FDA-Public Use
  Company Number: 18671-2007-0001

PATIENT
  Sex: Female
  Weight: 65.7716 kg

DRUGS (1)
  1. 100 MICROCURRIE, CARDINAL HEALTH [Suspect]
     Indication: THYROID FUNCTION TEST
     Dosage: 100 UCI, SINGLE, ORAL
     Route: 048

REACTIONS (2)
  - MOUTH HAEMORRHAGE [None]
  - ORAL MUCOSAL BLISTERING [None]
